FAERS Safety Report 25497757 (Version 3)
Quarter: 2025Q4

REPORT INFORMATION
  Report Type: Report from Study
  Country: AE (occurrence: AE)
  Receive Date: 20250701
  Receipt Date: 20251222
  Transmission Date: 20260118
  Serious: Yes (Death, Other)
  Sender: ROCHE
  Company Number: AE-ROCHE-10000295198

PATIENT
  Age: 34 Year
  Sex: Female

DRUGS (1)
  1. AVASTIN [Suspect]
     Active Substance: BEVACIZUMAB
     Indication: Product used for unknown indication

REACTIONS (4)
  - Malaise [Unknown]
  - Metastatic neoplasm [Unknown]
  - Dyspnoea [Unknown]
  - Death [Fatal]
